FAERS Safety Report 9461500 (Version 1)
Quarter: 2013Q3

REPORT INFORMATION
  Report Type: Report from Study
  Country: JP (occurrence: JP)
  Receive Date: 20130816
  Receipt Date: 20130816
  Transmission Date: 20140515
  Serious: Yes (Death, Life-Threatening, Hospitalization, Other)
  Sender: FDA-Public Use
  Company Number: PHHY2010JP52205

PATIENT
  Age: 73 Year
  Sex: Male
  Weight: 60 kg

DRUGS (4)
  1. AFINITOR [Suspect]
     Indication: RENAL CELL CARCINOMA
     Dosage: 5 MG, DAILY
     Route: 048
     Dates: start: 20100430, end: 20100614
  2. AFINITOR [Suspect]
     Indication: METASTATIC RENAL CELL CARCINOMA
     Dosage: 5 MG, UNK
     Route: 048
     Dates: start: 20100714, end: 20100727
  3. VOLTAREN [Concomitant]
     Dosage: 100 MG, UNK
     Route: 054
     Dates: start: 20100125
  4. FERO-GRADUMET [Concomitant]
     Route: 048

REACTIONS (5)
  - Platelet count decreased [Recovering/Resolving]
  - Neoplasm progression [Fatal]
  - Malignant neoplasm progression [Fatal]
  - Small intestinal haemorrhage [Recovering/Resolving]
  - Anaemia [Recovering/Resolving]
